FAERS Safety Report 5178318-7 (Version None)
Quarter: 2006Q4

REPORT INFORMATION
  Report Type: 
  Country: None (occurrence: None)
  Receive Date: 20061208
  Receipt Date: 20061124
  Transmission Date: 20070319
  Serious: Yes (Death, Other)
  Sender: FDA-Public Use
  Company Number: FABR-11752

PATIENT
  Age: 69 Year
  Sex: Male
  Weight: 61 kg

DRUGS (5)
  1. FABRAZYME [Suspect]
     Dosage: 60 MG Q2WKS IV
     Route: 042
     Dates: start: 20040914, end: 20060801
  2. CETIRIZINE HCL [Concomitant]
  3. RENAGEL [Concomitant]
  4. TRAMADOL HCL [Concomitant]
  5. LOVENOX [Concomitant]

REACTIONS (7)
  - CARDIOPULMONARY FAILURE [None]
  - COLITIS [None]
  - GASTROINTESTINAL HAEMORRHAGE [None]
  - HYPOTHYROIDISM [None]
  - SEPTIC SHOCK [None]
  - SKIN ULCER [None]
  - SUPERINFECTION [None]
